FAERS Safety Report 5675390-2 (Version None)
Quarter: 2008Q1

REPORT INFORMATION
  Report Type: 
  Country: None (occurrence: None)
  Receive Date: 20080320
  Receipt Date: 20080313
  Transmission Date: 20080703
  Serious: Yes (Other)
  Sender: FDA-Public Use
  Company Number: US-GENENTECH-257712

PATIENT
  Sex: Female
  Weight: 90.249 kg

DRUGS (1)
  1. XOLAIR [Suspect]
     Indication: ASTHMA
     Dosage: 375 UNK, UNK
     Route: 058
     Dates: start: 20080310, end: 20080310

REACTIONS (4)
  - COUGH [None]
  - PHARYNGEAL HYPOAESTHESIA [None]
  - PRURITUS GENERALISED [None]
  - SWELLING FACE [None]
